FAERS Safety Report 8055317-9 (Version None)
Quarter: 2012Q1

REPORT INFORMATION
  Report Type: 
  Country: None (occurrence: None)
  Receive Date: 20120119
  Receipt Date: 20120111
  Transmission Date: 20120608
  Serious: Yes (Other)
  Sender: FDA-Public Use
  Company Number: RS-PFIZER INC-2011268826

PATIENT
  Age: 11 Year
  Sex: Male
  Weight: 29 kg

DRUGS (2)
  1. MOROCTOCOG ALFA [Suspect]
  2. MOROCTOCOG ALFA [Suspect]
     Indication: FACTOR VIII DEFICIENCY
     Dosage: 750 IU, 2X/WEEK, AS PROPHYLAXIS
     Route: 042
     Dates: start: 20101011, end: 20111011

REACTIONS (1)
  - FACTOR VIII INHIBITION [None]
